FAERS Safety Report 20056767 (Version 2)
Quarter: 2021Q4

REPORT INFORMATION
  Report Type: Spontaneous
  Country: FR (occurrence: FR)
  Receive Date: 20211111
  Receipt Date: 20211116
  Transmission Date: 20220303
  Serious: Yes (Hospitalization, Congenital Anomaly, Other)
  Sender: FDA-Public Use
  Company Number: FR-ABBVIE-21K-056-4152764-00

PATIENT
  Sex: Male
  Weight: 3.65 kg

DRUGS (2)
  1. VALPROATE SODIUM [Suspect]
     Active Substance: VALPROATE SODIUM
     Indication: Maternal exposure timing unspecified
     Route: 064
  2. FOLIC ACID [Concomitant]
     Active Substance: FOLIC ACID
     Indication: Product used for unknown indication

REACTIONS (62)
  - Bronchiolitis [Unknown]
  - Respiratory distress [Unknown]
  - Regurgitation [Unknown]
  - Congenital musculoskeletal anomaly [Unknown]
  - Foetal exposure during pregnancy [Unknown]
  - Asthmatic crisis [Unknown]
  - Congenital genital malformation [Unknown]
  - Hypospadias [Unknown]
  - Skull malformation [Unknown]
  - Craniosynostosis [Unknown]
  - Myopia [Unknown]
  - Pigmentary glaucoma [Unknown]
  - Heart disease congenital [Unknown]
  - Autism spectrum disorder [Unknown]
  - Intellectual disability [Unknown]
  - Posterior cortical atrophy [Unknown]
  - Seizure [Unknown]
  - Congenital central nervous system anomaly [Unknown]
  - Hallucination [Unknown]
  - Microcephaly [Unknown]
  - Foetal anticonvulsant syndrome [Unknown]
  - Cardiac aneurysm [Unknown]
  - Micrognathia [Unknown]
  - Hypertrichosis [Unknown]
  - Congenital genital malformation [Unknown]
  - Cryptorchism [Unknown]
  - Eye disorder [Unknown]
  - Scoliosis [Unknown]
  - Behaviour disorder [Unknown]
  - Clinodactyly [Unknown]
  - Finger deformity [Unknown]
  - Brain malformation [Unknown]
  - Cerebral ventricle dilatation [Unknown]
  - Atrial septal defect [Unknown]
  - Psychomotor skills impaired [Unknown]
  - Psychomotor retardation [Unknown]
  - Aggression [Unknown]
  - Disturbance in attention [Unknown]
  - Behaviour disorder [Unknown]
  - Personality disorder [Unknown]
  - Hypersexuality [Unknown]
  - Balance disorder [Unknown]
  - Fear [Unknown]
  - Cognitive disorder [Unknown]
  - Impulsive behaviour [Unknown]
  - Aggression [Unknown]
  - Developmental delay [Unknown]
  - Adjustment disorder [Unknown]
  - Pectus excavatum [Unknown]
  - Congenital nipple anomaly [Unknown]
  - Gastrooesophageal reflux disease [Unknown]
  - Enuresis [Unknown]
  - Somnambulism [Unknown]
  - Sleep disorder [Unknown]
  - Craniosynostosis [Unknown]
  - Sluggishness [Unknown]
  - Poor feeding infant [Unknown]
  - Pollakiuria [Unknown]
  - Hypertonic bladder [Unknown]
  - Urinary incontinence [Unknown]
  - Fatigue [Unknown]
  - Dysmorphism [Unknown]

NARRATIVE: CASE EVENT DATE: 19961103
